FAERS Safety Report 5887709-8 (Version None)
Quarter: 2008Q3

REPORT INFORMATION
  Report Type: 
  Country: None (occurrence: None)
  Receive Date: 20080918
  Receipt Date: 20080910
  Transmission Date: 20090109
  Serious: Yes (Death)
  Sender: FDA-Public Use
  Company Number: GB-BAYER-200812397BNE

PATIENT
  Age: 92 Year
  Sex: Female
  Weight: 60 kg

DRUGS (8)
  1. ASPIRIN [Suspect]
     Indication: ACUTE CORONARY SYNDROME
     Route: 048
     Dates: start: 20070403, end: 20070403
  2. ASPIRIN [Suspect]
     Route: 048
     Dates: end: 20070410
  3. DALTEPARIN SODIUM [Suspect]
     Indication: ACUTE CORONARY SYNDROME
     Dosage: TOTAL DAILY DOSE: 14000 IU
     Route: 058
     Dates: start: 20070403
  4. FUROSEMIDE [Concomitant]
     Indication: DRUG USE FOR UNKNOWN INDICATION
     Route: 065
  5. GLICLAZIDE [Concomitant]
     Indication: UNEVALUABLE EVENT
     Route: 065
  6. INSULIN HUMAN (PYR) [Concomitant]
     Indication: DRUG USE FOR UNKNOWN INDICATION
     Route: 065
  7. PERINDOPRIL ERBUMINE [Concomitant]
     Indication: DRUG USE FOR UNKNOWN INDICATION
     Route: 065
  8. TRIMETHOPRIM [Concomitant]
     Indication: DRUG USE FOR UNKNOWN INDICATION

REACTIONS (3)
  - ABDOMINAL WALL HAEMORRHAGE [None]
  - PELVIC HAEMORRHAGE [None]
  - RETROPERITONEAL HAEMORRHAGE [None]
